FAERS Safety Report 6401597-2 (Version None)
Quarter: 2009Q4

REPORT INFORMATION
  Report Type: 
  Country: None (occurrence: None)
  Receive Date: 20091009
  Receipt Date: 20091009
  Transmission Date: 20100525
  Serious: Yes (Other)
  Sender: FDA-Public Use
  Company Number: None

PATIENT
  Sex: Male
  Weight: 97.5234 kg

DRUGS (1)
  1. TRICOR [Suspect]
     Indication: BLOOD TRIGLYCERIDES INCREASED
     Dosage: 1 TAB DAILY PO
     Route: 048
     Dates: start: 20090901, end: 20090905

REACTIONS (7)
  - ANXIETY [None]
  - ARTHRALGIA [None]
  - DYSPEPSIA [None]
  - GASTROOESOPHAGEAL REFLUX DISEASE [None]
  - NIGHTMARE [None]
  - OEDEMA PERIPHERAL [None]
  - PAIN IN EXTREMITY [None]
